FAERS Safety Report 25983091 (Version 1)
Quarter: 2025Q4

REPORT INFORMATION
  Report Type: Spontaneous
  Country: GB (occurrence: GB)
  Receive Date: 20251031
  Receipt Date: 20251031
  Transmission Date: 20260118
  Serious: Yes (Other)
  Sender: TORRENT PHARMA INC.
  Company Number: None

PATIENT
  Age: 82 Year
  Sex: Male

DRUGS (2)
  1. RISPERIDONE [Suspect]
     Active Substance: RISPERIDONE
     Indication: Neuropsychological symptoms
     Dosage: 0.25MG BD
     Route: 065
     Dates: start: 20251022, end: 20251024
  2. PREGABALIN [Concomitant]
     Active Substance: PREGABALIN
     Indication: Neuropsychological symptoms
     Dosage: UNKNOWN
     Route: 065

REACTIONS (2)
  - Swelling face [Recovering/Resolving]
  - Lip swelling [Recovering/Resolving]

NARRATIVE: CASE EVENT DATE: 20251023
